FAERS Safety Report 8565242-2 (Version None)
Quarter: 2012Q3

REPORT INFORMATION
  Report Type: 
  Country: None (occurrence: None)
  Receive Date: 20120803
  Receipt Date: 20120724
  Transmission Date: 20120928
  Serious: Yes (Hospitalization)
  Sender: FDA-Public Use
  Company Number: FR-GLAXOSMITHKLINE-B0816626A

PATIENT
  Sex: Male

DRUGS (10)
  1. OXALIPLATIN [Suspect]
     Indication: CHEMOTHERAPY
     Dosage: 195MG SINGLE DOSE
     Route: 042
     Dates: start: 20120627, end: 20120627
  2. BEVACIZUMAB [Suspect]
     Indication: CHEMOTHERAPY
     Dosage: 862.5MG SINGLE DOSE
     Route: 042
     Dates: start: 20120627, end: 20120627
  3. ELOXATIN [Concomitant]
     Route: 065
  4. FLUOROURACIL [Concomitant]
     Indication: CHEMOTHERAPY
     Route: 065
  5. MAGNESIUM SULFATE [Suspect]
     Indication: PREMEDICATION
     Dosage: 1G SINGLE DOSE
     Route: 042
     Dates: start: 20120627, end: 20120627
  6. CALCIUM GLUCONATE [Suspect]
     Indication: PREMEDICATION
     Dosage: 1G SINGLE DOSE
     Route: 042
     Dates: start: 20120627, end: 20120627
  7. ONDANSETRON HYDROCHLORIDE [Suspect]
     Indication: PREMEDICATION
     Dosage: 8MG SINGLE DOSE
     Route: 042
     Dates: start: 20120627, end: 20120627
  8. SOLU-MEDROL [Suspect]
     Indication: PREMEDICATION
     Dosage: 120MG SINGLE DOSE
     Route: 042
     Dates: start: 20120627, end: 20120627
  9. LEUCOVORIN CALCIUM [Concomitant]
     Indication: CHEMOTHERAPY
     Route: 065
  10. QUINAPRIL [Concomitant]
     Dosage: 20MG PER DAY
     Route: 065

REACTIONS (12)
  - ANAPHYLACTIC REACTION [None]
  - TONGUE OEDEMA [None]
  - DYSPHAGIA [None]
  - FEELING HOT [None]
  - APHASIA [None]
  - DYSPNOEA [None]
  - BLOOD PRESSURE INCREASED [None]
  - ANGIOEDEMA [None]
  - PARAESTHESIA ORAL [None]
  - LIP OEDEMA [None]
  - SALIVARY HYPERSECRETION [None]
  - OXYGEN SATURATION DECREASED [None]
